FAERS Safety Report 14432189 (Version 2)
Quarter: 2018Q2

REPORT INFORMATION
  Report Type: Spontaneous
  Country: US (occurrence: US)
  Receive Date: 20180124
  Receipt Date: 20180601
  Transmission Date: 20180711
  Serious: Yes (Hospitalization, Other)
  Sender: FDA-Public Use
  Company Number: US-DSJP-DSU-2017-133102

PATIENT

DRUGS (2)
  1. BENICAR HCT [Suspect]
     Active Substance: HYDROCHLOROTHIAZIDE\OLMESARTAN MEDOXOMIL
     Indication: PRODUCT USED FOR UNKNOWN INDICATION
     Dosage: 40-25 MG 1/2 TABLET, QD
     Route: 048
     Dates: start: 20041215, end: 201406
  2. BENICAR [Suspect]
     Active Substance: OLMESARTAN MEDOXOMIL
     Indication: PRODUCT USED FOR UNKNOWN INDICATION
     Dosage: 40 MG, QD
     Dates: start: 201406, end: 20160208

REACTIONS (6)
  - Sprue-like enteropathy [Recovering/Resolving]
  - Diverticulitis [Not Recovered/Not Resolved]
  - Acute kidney injury [Recovered/Resolved]
  - Cholelithiasis [Not Recovered/Not Resolved]
  - Diverticulum [Unknown]
  - Drug administration error [Unknown]

NARRATIVE: CASE EVENT DATE: 20100122
